FAERS Safety Report 7629301-0 (Version None)
Quarter: 2011Q3

REPORT INFORMATION
  Report Type: 
  Country: None (occurrence: None)
  Receive Date: 20110722
  Receipt Date: 20110720
  Transmission Date: 20111222
  Serious: Yes (Other)
  Sender: FDA-Public Use
  Company Number: GB-PFIZER INC-2011165485

PATIENT
  Age: 42 Year
  Sex: Female

DRUGS (1)
  1. VARENICLINE TARTRATE [Suspect]
     Dosage: 500 UG, 2X/DAY
     Route: 048
     Dates: start: 20110708, end: 20110710

REACTIONS (4)
  - PULSE ABNORMAL [None]
  - HYPERTENSION [None]
  - SUICIDAL IDEATION [None]
  - SYNCOPE [None]
